FAERS Safety Report 7506266-3 (Version None)
Quarter: 2011Q2

REPORT INFORMATION
  Report Type: 
  Country: None (occurrence: None)
  Receive Date: 20110526
  Receipt Date: 20110519
  Transmission Date: 20111010
  Serious: Yes (Death, Other)
  Sender: FDA-Public Use
  Company Number: US-ROXANE LABORATORIES, INC.-2011-RO-00698RO

PATIENT
  Age: 64 Year
  Sex: Female

DRUGS (3)
  1. METHOTREXATE [Suspect]
     Indication: DIFFUSE LARGE B-CELL LYMPHOMA
  2. LEUCOVORIN CALCIUM [Suspect]
     Indication: DRUG TOXICITY PROPHYLAXIS
  3. LEUCOVORIN CALCIUM [Suspect]
     Dosage: 1200 MG

REACTIONS (4)
  - THROMBOCYTOPENIA [None]
  - DIFFUSE LARGE B-CELL LYMPHOMA [None]
  - STOMATITIS [None]
  - TOXICITY TO VARIOUS AGENTS [None]
